FAERS Safety Report 21877800 (Version 1)
Quarter: 2023Q1

REPORT INFORMATION
  Report Type: Spontaneous
  Country: CA (occurrence: CA)
  Receive Date: 20230118
  Receipt Date: 20230118
  Transmission Date: 20230418
  Serious: Yes (Other)
  Sender: FDA-Public Use
  Company Number: None

PATIENT
  Age: 56 Year
  Sex: Female

DRUGS (17)
  1. METHOTREXATE [Suspect]
     Active Substance: METHOTREXATE
     Indication: Rheumatoid arthritis
     Dosage: 1 EVERY 1 WEEKS
     Route: 058
  2. ASPIRIN [Concomitant]
     Active Substance: ASPIRIN
     Dosage: EVERY 1 DAYS
  3. AMITRIPTYLINE [Concomitant]
     Active Substance: AMITRIPTYLINE
  4. ATORVASTATIN [Concomitant]
     Active Substance: ATORVASTATIN
     Dosage: EVERY 1 DAYS
     Route: 048
  5. BACLOFEN [Concomitant]
     Active Substance: BACLOFEN
     Dosage: 3 EVERY 1 DAYS
     Route: 048
  6. HYDROXYCHLOROQUINE [Concomitant]
     Active Substance: HYDROXYCHLOROQUINE
     Dosage: 2 EVERY 1 DAYS
     Route: 048
  7. LEFLUNOMIDE [Concomitant]
     Active Substance: LEFLUNOMIDE
     Dosage: EVERY 1 DAYS
     Route: 048
  8. MIRABEGRON [Concomitant]
     Active Substance: MIRABEGRON
     Dosage: EXTENDED- RELEASE,  EVERY 1 DAYS
     Route: 048
  9. PANTOPRAZOLE [Concomitant]
     Active Substance: PANTOPRAZOLE
     Dosage: EVERY 1 DAYS
     Route: 048
  10. PREGABALIN [Concomitant]
     Active Substance: PREGABALIN
     Dosage: 3 EVERY 1 DAYS
     Route: 048
  11. PREMARIN [Concomitant]
     Active Substance: ESTROGENS, CONJUGATED
     Dosage: EVERY 1 DAYS
     Route: 048
  12. RUPATADINE FUMARATE [Concomitant]
     Active Substance: RUPATADINE FUMARATE
     Dosage: EVERY 1 DAYS
     Route: 048
  13. ALBUTEROL [Concomitant]
     Active Substance: ALBUTEROL
  14. SULFASALAZINE [Concomitant]
     Active Substance: SULFASALAZINE
     Dosage: 2 EVERY 1 DAYS
  15. TAPENTADOL [Concomitant]
     Active Substance: TAPENTADOL
     Dosage: 3 EVERY 1 DAYS
     Route: 048
  16. TELMISARTAN [Concomitant]
     Active Substance: TELMISARTAN
     Dosage: EVERY 1 DAYS
     Route: 048
  17. MOMETASONE [Concomitant]
     Active Substance: MOMETASONE
     Dosage: AEROSOL, METERED DOSE, 2 EVERY 1 DAYS

REACTIONS (2)
  - Dyspnoea [Unknown]
  - General physical health deterioration [Unknown]
